FAERS Safety Report 10570232 (Version 1)
Quarter: 2014Q4

REPORT INFORMATION
  Report Type: Spontaneous
  Country: GB (occurrence: None)
  Receive Date: 20141105
  Receipt Date: 20141105
  Transmission Date: 20150529
  Serious: Yes (Life-Threatening, Hospitalization)
  Sender: FDA-Public Use
  Company Number: IMP_07997_2014

PATIENT
  Age: 68 Year
  Sex: Female

DRUGS (2)
  1. METFORMIN [Suspect]
     Active Substance: METFORMIN HYDROCHLORIDE
     Indication: TYPE 2 DIABETES MELLITUS
     Dosage: DF
  2. ALCOHOL. [Concomitant]
     Active Substance: ALCOHOL

REACTIONS (7)
  - Hypoglycaemia [None]
  - Metabolic acidosis [None]
  - Rhabdomyolysis [None]
  - Agitation [None]
  - Alcohol poisoning [None]
  - Lactic acidosis [None]
  - Confusional state [None]
